FAERS Safety Report 6757610-6 (Version None)
Quarter: 2010Q2

REPORT INFORMATION
  Report Type: 
  Country: None (occurrence: None)
  Receive Date: 20100607
  Receipt Date: 20100528
  Transmission Date: 20101027
  Serious: Yes (Disabling, Other)
  Sender: FDA-Public Use
  Company Number: AU-WYE-G05834310

PATIENT
  Sex: Female
  Weight: 71 kg

DRUGS (2)
  1. EFFEXOR XR [Suspect]
     Indication: ANXIETY
     Dosage: 75MG DAILY FOR TWO YEARS, THEN WEANING OFF THE LAST WEEK AT 75MG EVERY SECOND DAY
     Route: 048
  2. EFFEXOR XR [Suspect]
     Indication: DEPRESSION

REACTIONS (7)
  - ASTHENOPIA [None]
  - BEDRIDDEN [None]
  - DIZZINESS [None]
  - DRUG WITHDRAWAL SYNDROME [None]
  - MALAISE [None]
  - MEMORY IMPAIRMENT [None]
  - NIGHTMARE [None]
